FAERS Safety Report 4274651-1 (Version None)
Quarter: 2004Q1

REPORT INFORMATION
  Report Type: 
  Country: None (occurrence: None)
  Receive Date: 20040120
  Receipt Date: 20031119
  Transmission Date: 20041129
  Serious: Yes (Life-Threatening)
  Sender: FDA-Public Use
  Company Number: DE-BRISTOL-MYERS SQUIBB COMPANY-12439444

PATIENT
  Age: 64 Year
  Sex: Female
  Weight: 44 kg

DRUGS (3)
  1. PACLITAXEL [Suspect]
     Indication: OVARIAN CANCER
     Route: 042
     Dates: start: 20031010, end: 20031010
  2. RIBOCARBO [Suspect]
     Indication: OVARIAN CANCER
     Route: 042
     Dates: start: 20031010, end: 20031010
  3. GEMZAR [Suspect]
     Indication: OVARIAN CANCER
     Route: 042
     Dates: start: 20031017, end: 20031017

REACTIONS (3)
  - ENDOCARDITIS [None]
  - HYPOTENSION [None]
  - SEPSIS [None]
